FAERS Safety Report 21468905 (Version 2)
Quarter: 2022Q4

REPORT INFORMATION
  Report Type: Report from Study
  Country: JP (occurrence: JP)
  Receive Date: 20221018
  Receipt Date: 20221220
  Transmission Date: 20230112
  Serious: Yes (Other)
  Sender: FDA-Public Use
  Company Number: JP-SAMOHPHARM-2022000496

PATIENT

DRUGS (7)
  1. CYSTADANE [Suspect]
     Active Substance: BETAINE
     Indication: Product used for unknown indication
     Dosage: 13 GRAM (UNKNOWN DOSE BID)
     Route: 065
     Dates: start: 20141208, end: 20190913
  2. CYSTADANE [Suspect]
     Active Substance: BETAINE
     Dosage: 7 GRAM, BID
     Route: 065
     Dates: start: 20190914, end: 20210115
  3. CYSTADANE [Suspect]
     Active Substance: BETAINE
     Dosage: 8 GRAM, BID
     Route: 065
     Dates: start: 20210116, end: 20210515
  4. CYSTADANE [Suspect]
     Active Substance: BETAINE
     Dosage: 7 GRAM, BID
     Route: 065
     Dates: start: 20210516
  5. DEPAKENE [Concomitant]
     Active Substance: VALPROIC ACID
     Indication: Disease complication
     Dosage: 4 TABLETS OF 100 MG
     Route: 048
  6. DIAZEPAM [Concomitant]
     Active Substance: DIAZEPAM
     Indication: Disease complication
     Dosage: 2 TABLETS OF 5 MG
     Route: 048
  7. METHYLCOBALAMIN [Concomitant]
     Active Substance: METHYLCOBALAMIN
     Indication: Disease complication
     Dosage: 3 TABLETS OF 500 MG
     Route: 048

REACTIONS (3)
  - Hallucination [Recovered/Resolved]
  - Diarrhoea [Recovered/Resolved]
  - Overdose [Recovered/Resolved]

NARRATIVE: CASE EVENT DATE: 20141208
